FAERS Safety Report 22867981 (Version 2)
Quarter: 2025Q2

REPORT INFORMATION
  Report Type: Spontaneous
  Country: CA (occurrence: CA)
  Receive Date: 20230825
  Receipt Date: 20250411
  Transmission Date: 20250717
  Serious: Yes (Life-Threatening, Other)
  Sender: AUROBINDO
  Company Number: CA-AUROBINDO-AUR-APL-2023-054822

PATIENT
  Age: 61 Year
  Sex: Male

DRUGS (45)
  1. LAMOTRIGINE [Suspect]
     Active Substance: LAMOTRIGINE
     Indication: Mixed anxiety and depressive disorder
     Route: 065
  2. LAMOTRIGINE [Suspect]
     Active Substance: LAMOTRIGINE
     Indication: Bipolar I disorder
  3. LAMOTRIGINE [Suspect]
     Active Substance: LAMOTRIGINE
     Indication: Mixed anxiety and depressive disorder
     Route: 065
  4. LAMOTRIGINE [Suspect]
     Active Substance: LAMOTRIGINE
     Indication: Bipolar I disorder
  5. OLANZAPINE [Suspect]
     Active Substance: OLANZAPINE
     Indication: Mixed anxiety and depressive disorder
     Route: 065
  6. OLANZAPINE [Suspect]
     Active Substance: OLANZAPINE
     Indication: Bipolar disorder
     Route: 065
  7. OLANZAPINE [Suspect]
     Active Substance: OLANZAPINE
     Indication: Agitation
  8. BUPROPION [Suspect]
     Active Substance: BUPROPION
     Indication: Bipolar disorder
     Route: 065
  9. BUPROPION [Suspect]
     Active Substance: BUPROPION
     Indication: Mixed anxiety and depressive disorder
  10. BUPROPION [Suspect]
     Active Substance: BUPROPION
     Indication: Bipolar disorder
     Route: 065
  11. BUPROPION [Suspect]
     Active Substance: BUPROPION
     Indication: Mixed anxiety and depressive disorder
  12. LITHIUM [Suspect]
     Active Substance: LITHIUM
     Indication: Mixed anxiety and depressive disorder
     Route: 065
  13. LITHIUM [Suspect]
     Active Substance: LITHIUM
     Indication: Bipolar I disorder
  14. OXAZEPAM [Concomitant]
     Active Substance: OXAZEPAM
     Indication: Mixed anxiety and depressive disorder
     Route: 065
  15. OXAZEPAM [Concomitant]
     Active Substance: OXAZEPAM
     Indication: Anxiety
  16. ARIPIPRAZOLE [Concomitant]
     Active Substance: ARIPIPRAZOLE
     Indication: Psychotic disorder
     Route: 065
  17. ARIPIPRAZOLE [Concomitant]
     Active Substance: ARIPIPRAZOLE
     Indication: Mixed anxiety and depressive disorder
  18. BREXPIPRAZOLE [Concomitant]
     Active Substance: BREXPIPRAZOLE
     Indication: Psychotic disorder
     Route: 065
  19. BREXPIPRAZOLE [Concomitant]
     Active Substance: BREXPIPRAZOLE
     Indication: Mixed anxiety and depressive disorder
  20. CARBAMAZEPINE [Concomitant]
     Active Substance: CARBAMAZEPINE
     Indication: Psychotic disorder
     Route: 065
  21. CARBAMAZEPINE [Concomitant]
     Active Substance: CARBAMAZEPINE
     Indication: Mixed anxiety and depressive disorder
  22. CLONAZEPAM [Concomitant]
     Active Substance: CLONAZEPAM
     Indication: Restless legs syndrome
     Route: 065
  23. CLONAZEPAM [Concomitant]
     Active Substance: CLONAZEPAM
     Indication: Mixed anxiety and depressive disorder
  24. CLONAZEPAM [Concomitant]
     Active Substance: CLONAZEPAM
     Indication: Restless legs syndrome
     Route: 065
  25. CLONAZEPAM [Concomitant]
     Active Substance: CLONAZEPAM
     Indication: Mixed anxiety and depressive disorder
  26. CLOZAPINE [Concomitant]
     Active Substance: CLOZAPINE
     Indication: Psychotic disorder
     Route: 065
  27. CLOZAPINE [Concomitant]
     Active Substance: CLOZAPINE
     Indication: Mixed anxiety and depressive disorder
  28. CLOZAPINE [Concomitant]
     Active Substance: CLOZAPINE
     Indication: Psychotic disorder
     Route: 065
  29. CLOZAPINE [Concomitant]
     Active Substance: CLOZAPINE
     Indication: Mixed anxiety and depressive disorder
  30. HALOPERIDOL [Concomitant]
     Active Substance: HALOPERIDOL
     Indication: Mixed anxiety and depressive disorder
     Route: 065
  31. HALOPERIDOL [Concomitant]
     Active Substance: HALOPERIDOL
     Indication: Agitation
  32. LORAZEPAM [Concomitant]
     Active Substance: LORAZEPAM
     Indication: Mixed anxiety and depressive disorder
     Dosage: 0.5 MILLIGRAM, ONCE A DAY
     Route: 065
  33. LORAZEPAM [Concomitant]
     Active Substance: LORAZEPAM
     Indication: Bipolar I disorder
  34. LURASIDONE [Concomitant]
     Active Substance: LURASIDONE
     Indication: Mixed anxiety and depressive disorder
     Route: 065
  35. LURASIDONE [Concomitant]
     Active Substance: LURASIDONE
     Indication: Psychotic disorder
  36. OXAZEPAM [Concomitant]
     Active Substance: OXAZEPAM
     Indication: Mixed anxiety and depressive disorder
     Route: 065
  37. OXAZEPAM [Concomitant]
     Active Substance: OXAZEPAM
     Indication: Anxiety
  38. QUETIAPINE [Concomitant]
     Active Substance: QUETIAPINE
     Indication: Mixed anxiety and depressive disorder
     Route: 065
  39. QUETIAPINE [Concomitant]
     Active Substance: QUETIAPINE
     Indication: Depression
  40. QUETIAPINE [Concomitant]
     Active Substance: QUETIAPINE
     Indication: Bipolar disorder
  41. TOPIRAMATE [Concomitant]
     Active Substance: TOPIRAMATE
     Indication: Post-traumatic stress disorder
     Route: 065
  42. TOPIRAMATE [Concomitant]
     Active Substance: TOPIRAMATE
     Indication: Obsessive-compulsive disorder
     Route: 065
  43. TOPIRAMATE [Concomitant]
     Active Substance: TOPIRAMATE
     Indication: Mixed anxiety and depressive disorder
  44. VALPROIC ACID [Concomitant]
     Active Substance: VALPROIC ACID
     Indication: Psychotic disorder
     Route: 065
  45. VALPROIC ACID [Concomitant]
     Active Substance: VALPROIC ACID
     Indication: Mixed anxiety and depressive disorder

REACTIONS (4)
  - Delirium [Unknown]
  - Mania [Unknown]
  - Drug intolerance [Unknown]
  - Drug ineffective [Unknown]
